FAERS Safety Report 5782420-6 (Version None)
Quarter: 2008Q2

REPORT INFORMATION
  Report Type: 
  Country: None (occurrence: None)
  Receive Date: 20080623
  Receipt Date: 20080609
  Transmission Date: 20081010
  Serious: Yes (Other)
  Sender: FDA-Public Use
  Company Number: PHHY2008DE10383

PATIENT
  Sex: Female

DRUGS (1)
  1. FEMARA [Suspect]
     Dosage: UNK
     Route: 048
     Dates: start: 20050101, end: 20070101

REACTIONS (3)
  - ARTHROPATHY [None]
  - BONE MARROW OEDEMA [None]
  - JOINT SWELLING [None]
